FAERS Safety Report 10400039 (Version 1)
Quarter: 2014Q3

REPORT INFORMATION
  Report Type: Spontaneous
  Country: US (occurrence: US)
  Receive Date: 20140821
  Receipt Date: 20140821
  Transmission Date: 20150326
  Serious: Yes (Death, Other)
  Sender: FDA-Public Use
  Company Number: PHHY2014US101095

PATIENT
  Age: 61 Year
  Sex: Male

DRUGS (3)
  1. DEXAMETHASONE. [Suspect]
     Active Substance: DEXAMETHASONE
     Indication: PLASMA CELL MYELOMA
  2. BORTEZOMIB [Suspect]
     Active Substance: BORTEZOMIB
     Indication: PLASMA CELL MYELOMA
  3. LENALIDOMIDE [Suspect]
     Active Substance: LENALIDOMIDE
     Indication: PLASMA CELL MYELOMA

REACTIONS (11)
  - Malignant neoplasm progression [Fatal]
  - Hydronephrosis [Unknown]
  - Skin mass [Fatal]
  - Skin lesion [Fatal]
  - Skin ulcer [Fatal]
  - Erythema [Fatal]
  - Neuroendocrine carcinoma of the skin [Fatal]
  - Skin haemorrhage [Fatal]
  - Oedema peripheral [Fatal]
  - Pain in extremity [Fatal]
  - Renal failure [Unknown]
